FAERS Safety Report 25378000 (Version 1)
Quarter: 2025Q2

REPORT INFORMATION
  Report Type: Spontaneous
  Country: CN (occurrence: CN)
  Receive Date: 20250530
  Receipt Date: 20250530
  Transmission Date: 20250717
  Serious: Yes (Hospitalization, Other)
  Sender: BAXTER
  Company Number: None

PATIENT
  Age: 65 Year
  Sex: Female
  Weight: 46 kg

DRUGS (7)
  1. CYCLOPHOSPHAMIDE [Suspect]
     Active Substance: CYCLOPHOSPHAMIDE
     Indication: Non-Hodgkin^s lymphoma
     Dosage: 1 G, QD
     Route: 040
     Dates: start: 20250509, end: 20250509
  2. SODIUM CHLORIDE [Suspect]
     Active Substance: SODIUM CHLORIDE
     Dosage: 20 ML, QD, 0.9 % WITH CYCLOPHOSPHAMIDE
     Route: 041
     Dates: start: 20250509, end: 20250509
  3. SODIUM CHLORIDE [Suspect]
     Active Substance: SODIUM CHLORIDE
     Dosage: 40 ML, QD, 0.9 % WITH EPIRUBICIN HYDROCHLORIDE
     Route: 041
     Dates: start: 20250509, end: 20250509
  4. SODIUM CHLORIDE [Suspect]
     Active Substance: SODIUM CHLORIDE
     Dosage: 500 ML, QD, 0.9 % WITH VINCRISTINE SULFATE
     Route: 041
     Dates: start: 20250509, end: 20250509
  5. EPIRUBICIN HYDROCHLORIDE [Suspect]
     Active Substance: EPIRUBICIN HYDROCHLORIDE
     Indication: Non-Hodgkin^s lymphoma
     Dosage: 60 MG, QD
     Route: 040
     Dates: start: 20250509, end: 20250509
  6. VINCRISTINE SULFATE [Suspect]
     Active Substance: VINCRISTINE SULFATE
     Indication: Non-Hodgkin^s lymphoma
     Dosage: 1.9 MG, QD
     Route: 041
     Dates: start: 20250509, end: 20250509
  7. PREDNISONE ACETATE [Suspect]
     Active Substance: PREDNISONE ACETATE
     Indication: Non-Hodgkin^s lymphoma
     Dosage: 20 MG, QD, ONCE DAILY
     Route: 048
     Dates: start: 20250509, end: 20250509

REACTIONS (6)
  - Myelosuppression [Recovering/Resolving]
  - Neutrophil percentage decreased [Unknown]
  - White blood cell count decreased [Unknown]
  - Platelet count decreased [Unknown]
  - Neutrophil count decreased [Unknown]
  - Asthenia [Recovering/Resolving]

NARRATIVE: CASE EVENT DATE: 20250508
